FAERS Safety Report 10562787 (Version 1)
Quarter: 2014Q4

REPORT INFORMATION
  Report Type: Report from Study
  Country: CN (occurrence: US)
  Receive Date: 20141104
  Receipt Date: 20141104
  Transmission Date: 20150529
  Serious: Yes (Death, Hospitalization, Other)
  Sender: FDA-Public Use
  Company Number: CN-ELI_LILLY_AND_COMPANY-US201410010705

PATIENT
  Age: 44 Year
  Sex: Male
  Weight: 64 kg

DRUGS (6)
  1. GEMCITABINE HYDROCHLORIDE. [Suspect]
     Active Substance: GEMCITABINE HYDROCHLORIDE
     Indication: PANCREATIC CARCINOMA METASTATIC
     Dosage: UNK, CYCLICAL
     Route: 042
     Dates: start: 20140307, end: 20140606
  2. PACLITAXEL, ABI-007 PROTEIN BOUND [Suspect]
     Active Substance: PACLITAXEL
     Dosage: 100 MG/M2, OTHER
     Route: 042
     Dates: start: 20140618, end: 20140618
  3. PACLITAXEL, ABI-007 PROTEIN BOUND [Suspect]
     Active Substance: PACLITAXEL
     Dosage: UNK
     Route: 042
     Dates: start: 20140701, end: 20140701
  4. GEMCITABINE HYDROCHLORIDE. [Suspect]
     Active Substance: GEMCITABINE HYDROCHLORIDE
     Dosage: 600 MG/M2, UNK
     Route: 042
     Dates: start: 20140618, end: 20140701
  5. PACLITAXEL, ABI-007 PROTEIN BOUND [Suspect]
     Active Substance: PACLITAXEL
     Indication: PANCREATIC CARCINOMA METASTATIC
     Dosage: UNK, CYCLICAL
     Route: 042
     Dates: start: 20140307
  6. GEMCITABINE HYDROCHLORIDE. [Suspect]
     Active Substance: GEMCITABINE HYDROCHLORIDE
     Dosage: UNK

REACTIONS (3)
  - Haemoglobin decreased [Fatal]
  - Oesophageal varices haemorrhage [Unknown]
  - Portal hypertension [Unknown]

NARRATIVE: CASE EVENT DATE: 20140618
